FAERS Safety Report 7841987-4 (Version None)
Quarter: 2011Q4

REPORT INFORMATION
  Report Type: 
  Country: None (occurrence: None)
  Receive Date: 20111019
  Receipt Date: 20111006
  Transmission Date: 20120403
  Serious: Yes (Other)
  Sender: FDA-Public Use
  Company Number: 2011SP047662

PATIENT
  Sex: Male

DRUGS (2)
  1. ZADITEN [Concomitant]
  2. DESLORATADINE [Suspect]
     Indication: HYPERSENSITIVITY
     Dosage: 5 MG;QD
     Dates: start: 20110426, end: 20110901

REACTIONS (4)
  - HYPERSENSITIVITY [None]
  - RASH [None]
  - LACRIMATION INCREASED [None]
  - DRUG INEFFECTIVE [None]
